FAERS Safety Report 9049276 (Version 3)
Quarter: 2013Q1

REPORT INFORMATION
  Report Type: Spontaneous
  Country: DK (occurrence: DK)
  Receive Date: 20130205
  Receipt Date: 20130325
  Transmission Date: 20140127
  Serious: No
  Sender: FDA-Public Use
  Company Number: DK-ROCHE-1187342

PATIENT
  Age: 58 None
  Sex: Female
  Weight: 72 kg

DRUGS (7)
  1. ROACTEMRA [Suspect]
     Indication: RHEUMATOID ARTHRITIS
     Dosage: 5TH INFUSION WAS GIVEN
     Route: 042
     Dates: start: 20120912
  2. ROACTEMRA [Suspect]
     Dosage: THE SIXTH INFUSION WAS GIVEN
     Route: 065
  3. BALDRIAN [Concomitant]
  4. PREDNISOLON [Concomitant]
     Indication: RHEUMATOID ARTHRITIS
     Route: 048
     Dates: start: 20120626
  5. SELO-ZOK [Concomitant]
     Route: 065
     Dates: start: 20120426
  6. BENADRYL [Concomitant]
     Route: 065
     Dates: start: 20120426
  7. BRICANYL TURBOHALER [Concomitant]
     Route: 065
     Dates: start: 20120426

REACTIONS (1)
  - Malaise [Recovered/Resolved]
